FAERS Safety Report 24099081 (Version 1)
Quarter: 2024Q3

REPORT INFORMATION
  Report Type: Spontaneous
  Country: US (occurrence: US)
  Receive Date: 20240716
  Receipt Date: 20240716
  Transmission Date: 20241017
  Serious: No
  Sender: NOVO NORDISK
  Company Number: US-NOVOPROD-1168146

PATIENT
  Sex: Female

DRUGS (1)
  1. OZEMPIC [Suspect]
     Active Substance: SEMAGLUTIDE
     Indication: Type 2 diabetes mellitus
     Dosage: STARTED AT .25MG/WK AND TITRATED UP TO 1.25MG/WK
     Route: 058
     Dates: start: 20230302, end: 20240122

REACTIONS (4)
  - Tinnitus [Not Recovered/Not Resolved]
  - Headache [Recovering/Resolving]
  - Migraine [Unknown]
  - Sinusitis [Unknown]

NARRATIVE: CASE EVENT DATE: 20230323
